FAERS Safety Report 5016318-8 (Version None)
Quarter: 2006Q2

REPORT INFORMATION
  Report Type: 
  Country: None (occurrence: None)
  Receive Date: 20060525
  Receipt Date: 20060503
  Transmission Date: 20061013
  Serious: Yes (Hospitalization, Other)
  Sender: FDA-Public Use
  Company Number: FI200605001156

PATIENT
  Age: 74 Year
  Sex: Male
  Weight: 76 kg

DRUGS (8)
  1. CYMBALTA [Suspect]
     Indication: DEPRESSION
     Dosage: 60 MG, DAILY (1/D), ORAL
     Route: 048
     Dates: start: 20060414, end: 20060415
  2. BISOPROLOL [Concomitant]
  3. DISPERIN /FIN/ (ACETYLSALICYLIC ACID) [Concomitant]
  4. RISPERDAL /SWE/ (RISPERIDONE) [Concomitant]
  5. ALPROX (ALPRAZOLAM) [Concomitant]
  6. TENOX (TEMAZEPAM) [Concomitant]
  7. DUPHALAC /NET/ (LACTULOSE) [Concomitant]
  8. AGIOCUR (ISPAGHULA) [Concomitant]

REACTIONS (13)
  - APATHY [None]
  - CONFUSIONAL STATE [None]
  - DEPRESSION [None]
  - DIZZINESS POSTURAL [None]
  - EXTRAPYRAMIDAL DISORDER [None]
  - FATIGUE [None]
  - HYPONATRAEMIA [None]
  - HYPOTENSION [None]
  - LOSS OF CONSCIOUSNESS [None]
  - MEMORY IMPAIRMENT [None]
  - MUSCULOSKELETAL STIFFNESS [None]
  - ORTHOSTATIC HYPOTENSION [None]
  - PETIT MAL EPILEPSY [None]
